FAERS Safety Report 22539808 (Version 3)
Quarter: 2023Q2

REPORT INFORMATION
  Report Type: Spontaneous
  Country: ES (occurrence: ES)
  Receive Date: 20230609
  Receipt Date: 20230623
  Transmission Date: 20230722
  Serious: Yes (Life-Threatening, Hospitalization)
  Sender: FDA-Public Use
  Company Number: None

PATIENT
  Age: 47 Year
  Sex: Male
  Weight: 91.1 kg

DRUGS (6)
  1. BROMAZEPAM [Interacting]
     Active Substance: BROMAZEPAM
     Indication: Suicide attempt
     Dosage: 90 MG, IN 1 TOTAL (30 CAPSULES, HARD) (60COMPXX1.5MG)
     Route: 048
     Dates: start: 20230508, end: 20230508
  2. MIRTAZAPINE [Interacting]
     Active Substance: MIRTAZAPINE
     Indication: Suicide attempt
     Dosage: 900 MG, IN 1 TOTAL (60 COMPX 15 MG)
     Route: 048
     Dates: start: 20230508, end: 20230508
  3. ATORVASTATIN [Interacting]
     Active Substance: ATORVASTATIN
     Indication: Suicide attempt
     Dosage: 560 MG, IN 1 TOTAL (28 COMPX 20 MG)
     Route: 048
     Dates: start: 20230508, end: 20230508
  4. EBASTINE [Interacting]
     Active Substance: EBASTINE
     Indication: Suicide attempt
     Dosage: 200 MG IN 1 TOTAL (10 COMPX 20MG)
     Route: 048
     Dates: start: 20230508, end: 20230508
  5. DEFLAZACORT [Interacting]
     Active Substance: DEFLAZACORT
     Indication: Suicide attempt
     Dosage: 240 MG IN 1 TOTAL (8 COMPX 30 MG)
     Route: 048
     Dates: start: 20230508, end: 20230508
  6. FLUOXETINE [Interacting]
     Active Substance: FLUOXETINE HYDROCHLORIDE
     Indication: Suicide attempt
     Dosage: 1000 MG 1 IN TOTAL (50 COMPX)
     Route: 048
     Dates: start: 20230508, end: 20230508

REACTIONS (5)
  - Haemodynamic instability [Recovered/Resolved]
  - Depressed level of consciousness [Recovered/Resolved]
  - Pneumonia aspiration [Recovered/Resolved]
  - Overdose [Recovered/Resolved]
  - Acute kidney injury [Unknown]

NARRATIVE: CASE EVENT DATE: 20230508
